FAERS Safety Report 5151010-0 (Version None)
Quarter: 2006Q4

REPORT INFORMATION
  Report Type: 
  Country: None (occurrence: None)
  Receive Date: 20061113
  Receipt Date: 20061113
  Transmission Date: 20070319
  Serious: Yes (Death)
  Sender: FDA-Public Use
  Company Number: None

PATIENT
  Age: 85 Year
  Sex: Female

DRUGS (1)
  1. WINRHO [Suspect]
     Indication: IDIOPATHIC THROMBOCYTOPENIC PURPURA
     Dosage: IV X 1
     Route: 042
     Dates: start: 20060306

REACTIONS (4)
  - ABDOMINAL DISCOMFORT [None]
  - FEELING HOT [None]
  - HAEMOLYSIS [None]
  - INFUSION RELATED REACTION [None]
